FAERS Safety Report 24592707 (Version 2)
Quarter: 2024Q4

REPORT INFORMATION
  Report Type: Spontaneous
  Country: CH (occurrence: CH)
  Receive Date: 20241108
  Receipt Date: 20241115
  Transmission Date: 20250114
  Serious: No
  Sender: BLUEPRINT MEDICINES
  Company Number: CH-Blueprint Medicines Corporation-SP-CH-2024-002286

PATIENT
  Sex: Female

DRUGS (4)
  1. AVAPRITINIB [Suspect]
     Active Substance: AVAPRITINIB
     Indication: Indolent systemic mastocytosis
     Route: 048
     Dates: start: 20241015
  2. DESLORATADINE [Concomitant]
     Active Substance: DESLORATADINE
     Indication: Indolent systemic mastocytosis
     Route: 065
  3. FENTANYL [Concomitant]
     Active Substance: FENTANYL
     Indication: Indolent systemic mastocytosis
     Route: 065
  4. ESOMEPRAZOLE [Concomitant]
     Active Substance: ESOMEPRAZOLE
     Indication: Indolent systemic mastocytosis
     Route: 065

REACTIONS (5)
  - Headache [Recovering/Resolving]
  - Brain fog [Recovering/Resolving]
  - Asthenia [Not Recovered/Not Resolved]
  - Mast cell degranulation present [Recovered/Resolved]
  - Product used for unknown indication [Unknown]
